FAERS Safety Report 8512263-1 (Version None)
Quarter: 2012Q3

REPORT INFORMATION
  Report Type: 
  Country: None (occurrence: None)
  Receive Date: 20120716
  Receipt Date: 20120709
  Transmission Date: 20120928
  Serious: Yes (Other)
  Sender: FDA-Public Use
  Company Number: PHHY2012CA027702

PATIENT
  Sex: Female

DRUGS (4)
  1. GILENYA [Suspect]
     Dosage: 0.5 MG, DAILY
     Route: 048
     Dates: start: 20120425
  2. FAMVIR [Suspect]
     Route: 048
  3. GILENYA [Suspect]
     Indication: RELAPSING-REMITTING MULTIPLE SCLEROSIS
     Dosage: 0.5 MG, QD
     Route: 048
     Dates: start: 20110926, end: 20120319
  4. VITAMIN D [Concomitant]
     Dosage: 1000 U, DAILY

REACTIONS (8)
  - WHITE BLOOD CELL COUNT DECREASED [None]
  - LYMPHOCYTE COUNT DECREASED [None]
  - SCAB [None]
  - PAIN [None]
  - VOMITING [None]
  - BURNING SENSATION [None]
  - HERPES ZOSTER [None]
  - RASH [None]
